FAERS Safety Report 6761168-5 (Version None)
Quarter: 2010Q2

REPORT INFORMATION
  Report Type: 
  Country: None (occurrence: None)
  Receive Date: 20100608
  Receipt Date: 20100603
  Transmission Date: 20101027
  Serious: Yes (Life-Threatening, Hospitalization, Other)
  Sender: FDA-Public Use
  Company Number: US-WYE-H15487210

PATIENT
  Age: 58 Year
  Sex: Female
  Weight: 63.56 kg

DRUGS (1)
  1. PRISTIQ [Suspect]
     Indication: DEPRESSION
     Dosage: BEGAN WITH A LOW DOSAGE, WITH PLAN TO INCREASE TO FULL DOSAGE

REACTIONS (10)
  - ACTIVITIES OF DAILY LIVING IMPAIRED [None]
  - CONDITION AGGRAVATED [None]
  - DELUSION [None]
  - FEAR [None]
  - PSYCHOTIC DISORDER [None]
  - SUICIDAL IDEATION [None]
  - SUICIDE ATTEMPT [None]
  - THINKING ABNORMAL [None]
  - UNEVALUABLE EVENT [None]
  - VIOLENCE-RELATED SYMPTOM [None]
